FAERS Safety Report 6293509-X (Version None)
Quarter: 2009Q3

REPORT INFORMATION
  Report Type: 
  Country: None (occurrence: None)
  Receive Date: 20090803
  Receipt Date: 20070515
  Transmission Date: 20100115
  Serious: Yes (Other)
  Sender: FDA-Public Use
  Company Number: US-ASTRAZENECA-2006UW25223

PATIENT
  Age: 42 Year
  Sex: Female
  Weight: 103.4 kg

DRUGS (24)
  1. SEROQUEL [Suspect]
     Indication: INSOMNIA
     Route: 048
     Dates: start: 19980101, end: 20060810
  2. SEROQUEL [Suspect]
     Dosage: 25 MG TO 500 MG
     Route: 048
     Dates: start: 20020820
  3. RISPERDAL [Concomitant]
     Dates: start: 19970101
  4. ZOLOFT [Concomitant]
     Route: 048
     Dates: start: 20020820
  5. CARAFATE [Concomitant]
     Route: 048
     Dates: start: 19890228
  6. TAGAMET [Concomitant]
     Route: 048
     Dates: start: 19890228
  7. THEO-DUR [Concomitant]
     Route: 048
     Dates: start: 20020820
  8. ALBUTEROL [Concomitant]
     Route: 048
     Dates: start: 20020820
  9. GLUCOTROL [Concomitant]
     Route: 048
     Dates: start: 20020820
  10. TEGRETOL [Concomitant]
     Route: 048
     Dates: start: 20020820
  11. ASPIRIN [Concomitant]
     Route: 048
     Dates: start: 20020820
  12. CLONIDINE [Concomitant]
     Dosage: 0.2 MG EVERY WEEK
     Route: 048
     Dates: start: 20020820
  13. DIOVAN [Concomitant]
     Route: 048
     Dates: start: 20020820
  14. ZYPREXA [Concomitant]
     Route: 048
     Dates: start: 20020820
  15. RESTORIL [Concomitant]
     Route: 048
     Dates: start: 20020820
  16. PROTONIX [Concomitant]
     Route: 048
     Dates: start: 20020820
  17. PEPCID [Concomitant]
     Route: 048
     Dates: start: 20020820
  18. LIBRIUM [Concomitant]
     Route: 048
     Dates: start: 20020914
  19. ZANTAC [Concomitant]
     Route: 048
     Dates: start: 20020914
  20. ATIVAN [Concomitant]
     Route: 048
     Dates: start: 20041022
  21. VICODIN [Concomitant]
     Dosage: 7.5 MG, 1-2 TABLET AS REQUIRED
     Route: 048
     Dates: start: 20060822
  22. NEURONTIN [Concomitant]
     Route: 048
  23. TRICOR [Concomitant]
     Route: 048
     Dates: start: 20080205
  24. LOPERAMIDE HYDROCHLORIDE [Concomitant]
     Route: 048
     Dates: start: 20080205

REACTIONS (7)
  - DIABETES MELLITUS [None]
  - DIABETES MELLITUS INADEQUATE CONTROL [None]
  - DIABETIC EYE DISEASE [None]
  - DIABETIC NEUROPATHY [None]
  - DIABETIC RETINOPATHY [None]
  - TYPE 1 DIABETES MELLITUS [None]
  - TYPE 2 DIABETES MELLITUS [None]
